FAERS Safety Report 23853704 (Version 1)
Quarter: 2024Q2

REPORT INFORMATION
  Report Type: Other
  Country: GB (occurrence: None)
  Receive Date: 20240514
  Receipt Date: 20240514
  Transmission Date: 20240716
  Serious: No
  Sender: FDA-Public Use
  Company Number: GB-ROCHE-3420900

PATIENT
  Age: 32 Year
  Sex: Female

DRUGS (1)
  1. OCREVUS [Suspect]
     Active Substance: OCRELIZUMAB
     Indication: Relapsing-remitting multiple sclerosis
     Route: 065
     Dates: start: 20230207

REACTIONS (3)
  - Urinary tract infection [Unknown]
  - Escherichia test positive [Unknown]
  - Expanded disability status scale score increased [Unknown]

NARRATIVE: CASE EVENT DATE: 20230911
